FAERS Safety Report 20520174 (Version 3)
Quarter: 2022Q1

REPORT INFORMATION
  Report Type: Report from Study
  Country: PL (occurrence: None)
  Receive Date: 20220225
  Receipt Date: 20220323
  Transmission Date: 20220424
  Serious: Yes (Other)
  Sender: FDA-Public Use
  Company Number: PL-ROCHE-2895531

PATIENT
  Age: 63 Year
  Sex: Male

DRUGS (14)
  1. FARICIMAB [Suspect]
     Active Substance: FARICIMAB
     Indication: Diabetic retinal oedema
     Dosage: DATE OF MOST RECENT DOSE (6 MG) OF STUDY DRUG PRIOR TO SAE: 21/JUL/2021 AT 4:40 PM
     Route: 050
     Dates: start: 20210518
  2. INSULIN GLARGINE [Concomitant]
     Active Substance: INSULIN GLARGINE
     Indication: Diabetes mellitus
     Route: 058
     Dates: start: 2019
  3. INSULIN LISPRO [Concomitant]
     Active Substance: INSULIN LISPRO
     Indication: Diabetes mellitus
     Route: 058
     Dates: start: 2019
  4. TULIP (POLAND) [Concomitant]
     Indication: Hypercholesterolaemia
     Route: 048
     Dates: start: 2015
  5. EBIVOL [Concomitant]
     Indication: Hypertension
     Route: 048
     Dates: start: 20210602
  6. POTASSIUM CHLORIDE [Concomitant]
     Active Substance: POTASSIUM CHLORIDE
     Indication: Hypertension
     Route: 048
     Dates: start: 20210602
  7. INDAPAMIDE [Concomitant]
     Active Substance: INDAPAMIDE
     Indication: Hypertension
     Route: 048
     Dates: start: 20210602
  8. REVIVAL (POLAND) [Concomitant]
     Indication: Hypertension
     Route: 048
     Dates: start: 20210602
  9. ATROPINE [Concomitant]
     Active Substance: ATROPINE
     Indication: Vitritis
     Route: 047
     Dates: start: 20210819, end: 20210901
  10. DEXAMETHASONE [Concomitant]
     Active Substance: DEXAMETHASONE
     Indication: Vitritis
     Route: 047
     Dates: start: 20210819, end: 20210915
  11. BROMFENAC SODIUM [Concomitant]
     Active Substance: BROMFENAC SODIUM
     Indication: Vitritis
     Route: 047
     Dates: start: 20210819, end: 20210915
  12. METHYLPREDNISOLONE [Concomitant]
     Active Substance: METHYLPREDNISOLONE
     Indication: Vitritis
     Route: 048
     Dates: start: 20210819, end: 20210901
  13. IPP 40 [Concomitant]
     Indication: Vitritis
     Route: 048
     Dates: start: 20210819, end: 20210901
  14. IPP 40 [Concomitant]
     Route: 048
     Dates: start: 20210819, end: 20210916

REACTIONS (1)
  - Uveitis [Not Recovered/Not Resolved]

NARRATIVE: CASE EVENT DATE: 20210721
